FAERS Safety Report 6674073-X (Version None)
Quarter: 2010Q2

REPORT INFORMATION
  Report Type: 
  Country: None (occurrence: None)
  Receive Date: 20100409
  Receipt Date: 20100331
  Transmission Date: 20101027
  Serious: Yes (Hospitalization, Other)
  Sender: FDA-Public Use
  Company Number: FR-BRISTOL-MYERS SQUIBB COMPANY-15046808

PATIENT
  Age: 82 Year
  Sex: Female

DRUGS (11)
  1. COUMADIN [Suspect]
     Dosage: FORMULATION TABS
     Dates: end: 20090608
  2. RAMIPRIL [Concomitant]
     Dosage: FORMULATION: TABS
  3. GLUCOR [Concomitant]
     Dosage: FORMULATION: TABS
  4. ELISOR TABS 20 MG [Concomitant]
  5. REMINYL [Concomitant]
     Dosage: REMINYL LP CAPSULE
     Dates: end: 20090608
  6. CITALOPRAM HYDROBROMIDE [Concomitant]
     Dosage: FORMULATION: TABS
  7. NEXIUM [Concomitant]
     Dosage: FORMULATION: TABS
  8. CELEBREX [Concomitant]
     Dosage: FORMULATION: CAPSULE
     Dates: end: 20090608
  9. NPH INSULIN [Concomitant]
     Route: 058
  10. ZOLPIDEM [Concomitant]
  11. DOLIPRANE [Concomitant]
     Dosage: SACHET

REACTIONS (5)
  - ANAEMIA [None]
  - DIVERTICULUM [None]
  - HIATUS HERNIA [None]
  - OVERDOSE [None]
  - RECTAL HAEMORRHAGE [None]
